FAERS Safety Report 6142772-4 (Version None)
Quarter: 2009Q2

REPORT INFORMATION
  Report Type: 
  Country: None (occurrence: None)
  Receive Date: 20090403
  Receipt Date: 20090325
  Transmission Date: 20091009
  Serious: Yes (Hospitalization)
  Sender: FDA-Public Use
  Company Number: GB-AMGEN-US340317

PATIENT
  Sex: Female
  Weight: 59 kg

DRUGS (9)
  1. ENBREL [Suspect]
     Indication: RHEUMATOID ARTHRITIS
     Route: 058
     Dates: start: 20031205, end: 20061130
  2. BECOTIDE [Concomitant]
     Dosage: UNKNOWN
  3. FOSAMAX [Concomitant]
     Dosage: UNKNOWN
     Route: 065
  4. TRAMADOL HCL [Concomitant]
     Dosage: UNKNOWN
     Route: 065
  5. OMEPRAZOLE [Concomitant]
     Dosage: UNKNOWN
     Route: 065
  6. SENNA [Concomitant]
     Dosage: UNKNOWN
     Route: 065
  7. LEVOTHYROXINE SODIUM [Concomitant]
     Dosage: UNKNOWN
     Route: 065
  8. METHOTREXATE [Concomitant]
     Dosage: UNKNOWN
     Route: 065
     Dates: start: 20060626
  9. LACTULOSE [Concomitant]
     Dosage: UNKNOWN
     Route: 065

REACTIONS (1)
  - GLOMERULONEPHRITIS PROLIFERATIVE [None]
